FAERS Safety Report 7685949-9 (Version None)
Quarter: 2011Q3

REPORT INFORMATION
  Report Type: 
  Country: None (occurrence: None)
  Receive Date: 20110816
  Receipt Date: 20110802
  Transmission Date: 20111222
  Serious: Yes (Hospitalization, Other)
  Sender: FDA-Public Use
  Company Number: PHHY2011BR70696

PATIENT
  Age: 80 Year
  Sex: Male

DRUGS (3)
  1. CLOPIDOGREL [Concomitant]
     Indication: EMPHYSEMA
     Dosage: 75 MG, A DAY
     Route: 048
  2. DIOVAN HCT [Suspect]
     Indication: HYPERTENSION
     Dosage: 1 DF(320/25MG) DAILY
     Route: 048
  3. ALENIA [Concomitant]
     Indication: EMPHYSEMA
     Dosage: 12/400MG TWICE A DAY

REACTIONS (3)
  - PYREXIA [None]
  - PULMONARY OEDEMA [None]
  - DEMENTIA ALZHEIMER'S TYPE [None]
